FAERS Safety Report 5839980-6 (Version None)
Quarter: 2008Q3

REPORT INFORMATION
  Report Type: 
  Country: None (occurrence: None)
  Receive Date: 20080811
  Receipt Date: 20080714
  Transmission Date: 20090109
  Serious: Yes (Hospitalization, Other)
  Sender: FDA-Public Use
  Company Number: PHEH2008US04761

PATIENT
  Sex: Female

DRUGS (9)
  1. TASIGNA [Suspect]
     Indication: CHRONIC MYELOID LEUKAEMIA
     Dosage: 400 MG, BID
     Route: 048
     Dates: start: 20080417, end: 20080428
  2. TASIGNA [Suspect]
     Dosage: 200 MG, BID
     Route: 048
     Dates: start: 20080424, end: 20080515
  3. TASIGNA [Suspect]
     Dosage: 200 MG, QD
     Route: 048
     Dates: start: 20080515, end: 20080527
  4. GLEEVEC [Suspect]
     Indication: CHRONIC MYELOID LEUKAEMIA
  5. HYDREA [Concomitant]
     Dosage: UNK
     Dates: end: 20080414
  6. HYDREA [Concomitant]
     Dosage: 1000 MG, QD
     Route: 048
     Dates: start: 20080414
  7. ALLOPURINOL [Concomitant]
  8. LEVAQUIN [Concomitant]
  9. ROCEPHIN [Concomitant]

REACTIONS (27)
  - ANTIBODY TEST ABNORMAL [None]
  - BASOPHIL COUNT INCREASED [None]
  - BLAST CRISIS IN MYELOGENOUS LEUKAEMIA [None]
  - BLOOD ALBUMIN DECREASED [None]
  - BLOOD ALKALINE PHOSPHATASE INCREASED [None]
  - BLOOD CALCIUM DECREASED [None]
  - BLOOD CREATININE INCREASED [None]
  - BLOOD CULTURE POSITIVE [None]
  - BLOOD GLUCOSE INCREASED [None]
  - BLOOD LACTATE DEHYDROGENASE INCREASED [None]
  - BLOOD URIC ACID DECREASED [None]
  - BLOOD URIC ACID INCREASED [None]
  - CULTURE URINE [None]
  - ELECTROCARDIOGRAM ST SEGMENT DEPRESSION [None]
  - GLOMERULAR FILTRATION RATE DECREASED [None]
  - HAEMATOCRIT DECREASED [None]
  - HAEMOGLOBIN DECREASED [None]
  - HYPERBILIRUBINAEMIA [None]
  - LIVER FUNCTION TEST ABNORMAL [None]
  - PLATELET COUNT DECREASED [None]
  - PLATELET COUNT INCREASED [None]
  - RED BLOOD CELL COUNT INCREASED [None]
  - RED BLOOD CELL SEDIMENTATION RATE INCREASED [None]
  - SPLENOMEGALY [None]
  - THROMBOCYTOPENIA [None]
  - URINARY TRACT INFECTION BACTERIAL [None]
  - WHITE BLOOD CELL COUNT INCREASED [None]
